FAERS Safety Report 4284088-7 (Version None)
Quarter: 2004Q1

REPORT INFORMATION
  Report Type: 
  Country: None (occurrence: None)
  Receive Date: 20040130
  Receipt Date: 20040122
  Transmission Date: 20041129
  Serious: Yes (Hospitalization)
  Sender: FDA-Public Use
  Company Number: 2004UW01160

PATIENT
  Age: 8 Year
  Sex: Male
  Weight: 43.0917 kg

DRUGS (4)
  1. PULMICORT RESPULES [Suspect]
     Indication: ASTHMA
     Dosage: 0.25 MG BID IH
     Route: 055
  2. PULMICORT RESPULES [Suspect]
     Indication: ASTHMA
     Dosage: 0.5 MG DAILY IH
     Route: 055
  3. SINGULAIR [Concomitant]
  4. ALBUTEROL [Concomitant]

REACTIONS (3)
  - ASTHMA [None]
  - INCREASED APPETITE [None]
  - NASOPHARYNGITIS [None]
